FAERS Safety Report 8107391-9 (Version None)
Quarter: 2012Q1

REPORT INFORMATION
  Report Type: 
  Country: None (occurrence: None)
  Receive Date: 20120202
  Receipt Date: 20120119
  Transmission Date: 20120608
  Serious: Yes (Hospitalization, Other)
  Sender: FDA-Public Use
  Company Number: BR-SANOFI-AVENTIS-2012SA004345

PATIENT
  Age: 9 Year
  Sex: Female
  Weight: 28 kg

DRUGS (1)
  1. LANTUS [Suspect]
     Route: 058
     Dates: start: 20110101

REACTIONS (10)
  - ABDOMINAL PAIN [None]
  - VOMITING [None]
  - DIZZINESS [None]
  - HYPERGLYCAEMIA [None]
  - HYPOGLYCAEMIA [None]
  - KETOACIDOSIS [None]
  - EYE PAIN [None]
  - EYE DISORDER [None]
  - ABDOMINAL SYMPTOM [None]
  - DEHYDRATION [None]
